FAERS Safety Report 5648329-3 (Version None)
Quarter: 2008Q1

REPORT INFORMATION
  Report Type: 
  Country: None (occurrence: None)
  Receive Date: 20080303
  Receipt Date: 20080303
  Transmission Date: 20080703
  Serious: Yes (Hospitalization)
  Sender: FDA-Public Use
  Company Number: None

PATIENT
  Age: 69 Year
  Sex: Male
  Weight: 119 kg

DRUGS (2)
  1. LORAZEPAM [Suspect]
     Indication: AGGRESSION
     Dosage: 2MG  1X  IV
     Route: 042
     Dates: start: 20071212, end: 20071212
  2. LORAZEPAM [Suspect]
     Indication: AGITATION
     Dosage: 2MG  1X  IV
     Route: 042
     Dates: start: 20071212, end: 20071212

REACTIONS (1)
  - MEDICATION ERROR [None]
